FAERS Safety Report 4698656-1 (Version None)
Quarter: 2005Q2

REPORT INFORMATION
  Report Type: 
  Country: None (occurrence: None)
  Receive Date: 20050622
  Receipt Date: 20050315
  Transmission Date: 20051028
  Serious: No
  Sender: FDA-Public Use
  Company Number: SU-2005-003367

PATIENT
  Age: 55 Year
  Sex: Female
  Weight: 83.9154 kg

DRUGS (11)
  1. BENICAR HCT [Suspect]
     Indication: HYPERTENSION
     Dosage: 20.125 MG QD PO
     Route: 048
     Dates: start: 20050313
  2. WELLBUTRIN [Concomitant]
  3. NECON [Concomitant]
  4. XANAX [Concomitant]
  5. GLUCOSAMINE CHONDROITIN [Concomitant]
  6. ASCORBIC ACID [Concomitant]
  7. IBUPROFEN [Concomitant]
  8. VITAMIN E [Concomitant]
  9. BETA CAROTENE [Concomitant]
  10. ASPIRIN [Concomitant]
  11. RED CLOVER [Concomitant]

REACTIONS (2)
  - DIZZINESS [None]
  - TREMOR [None]
